FAERS Safety Report 4779864-8 (Version None)
Quarter: 2005Q3

REPORT INFORMATION
  Report Type: 
  Country: None (occurrence: None)
  Receive Date: 20050914
  Receipt Date: 20040820
  Transmission Date: 20060218
  Serious: Yes (Other)
  Sender: FDA-Public Use
  Company Number: 163-20785-04080441

PATIENT
  Age: 54 Year
  Sex: Female

DRUGS (12)
  1. THALOMID [Suspect]
     Indication: GLIOBLASTOMA MULTIFORME
     Dosage: 50 MG, DAILY, ORAL; 100 MG, DAILY, ORAL
     Route: 048
     Dates: start: 20040205, end: 20040101
  2. THALOMID [Suspect]
     Indication: GLIOBLASTOMA MULTIFORME
     Dosage: 50 MG, DAILY, ORAL; 100 MG, DAILY, ORAL
     Route: 048
     Dates: start: 20040101, end: 20040811
  3. IRINOTECAN [Suspect]
     Indication: GLIOBLASTOMA MULTIFORME
     Dosage: 350 MG/M2, Q 3 WEEKS
     Dates: start: 20040205, end: 20040722
  4. VALIUM [Concomitant]
  5. ZOLOFT [Concomitant]
  6. LOVENOX [Concomitant]
  7. SENOKOT [Concomitant]
  8. COLACE (DOCUSATE SODIUM) [Concomitant]
  9. KEPPRA [Concomitant]
  10. PSEUDOEPHEDRINE HCL+ACETAMINOPHEN+CHLORPHENIRAMINE (PSEUDOEPHEDRINE, C [Concomitant]
  11. LOPERAMIDE HCL (LOPERAMIDE) [Concomitant]
  12. DECADRON [Concomitant]

REACTIONS (2)
  - BACK PAIN [None]
  - COMPRESSION FRACTURE [None]
